FAERS Safety Report 9996162 (Version 1)
Quarter: 2014Q1

REPORT INFORMATION
  Report Type: Spontaneous
  Country: US (occurrence: None)
  Receive Date: 20140310
  Receipt Date: 20140310
  Transmission Date: 20141002
  Serious: Yes (Disabling)
  Sender: FDA-Public Use
  Company Number: None

PATIENT
  Age: 43 Year
  Sex: Female
  Weight: 72.58 kg

DRUGS (1)
  1. METHOTREXATE SODIUM [Suspect]

REACTIONS (11)
  - Nausea [None]
  - Dizziness [None]
  - Abdominal discomfort [None]
  - Arthralgia [None]
  - Back pain [None]
  - Crying [None]
  - Headache [None]
  - Sensory disturbance [None]
  - Mood swings [None]
  - Intracranial pressure increased [None]
  - Impaired work ability [None]
